FAERS Safety Report 10502907 (Version 2)
Quarter: 2014Q4

REPORT INFORMATION
  Report Type: Spontaneous
  Country: MX (occurrence: MX)
  Receive Date: 20141007
  Receipt Date: 20141007
  Transmission Date: 20150528
  Serious: Yes (Other)
  Sender: FDA-Public Use
  Company Number: MX-SA-2014SA125080

PATIENT
  Age: 26 Year
  Sex: Female

DRUGS (1)
  1. FABRAZYME [Suspect]
     Active Substance: AGALSIDASE BETA
     Indication: FABRY^S DISEASE
     Route: 041
     Dates: start: 20140804

REACTIONS (6)
  - Nausea [Recovering/Resolving]
  - Early satiety [Recovering/Resolving]
  - Peptic ulcer [Recovering/Resolving]
  - Abdominal pain upper [Recovering/Resolving]
  - Injection site pain [Not Recovered/Not Resolved]
  - Dyspnoea [Not Recovered/Not Resolved]

NARRATIVE: CASE EVENT DATE: 20140808
